FAERS Safety Report 4952590-8 (Version None)
Quarter: 2006Q1

REPORT INFORMATION
  Report Type: 
  Country: None (occurrence: None)
  Receive Date: 20060317
  Receipt Date: 20060306
  Transmission Date: 20060701
  Serious: Yes (Hospitalization, Other)
  Sender: FDA-Public Use
  Company Number: USA-2004-0014913

PATIENT
  Age: 43 Year
  Sex: Female

DRUGS (12)
  1. OXYCONTIN [Suspect]
     Indication: PAIN
     Dosage: 20 MG; 40 MG ; 80 MG Q12H
     Dates: start: 20030101
  2. PERCOCET [Concomitant]
  3. GABITRIL [Concomitant]
  4. FLEXERIL (CYCLOBENZAPIRNE HYDROCHLORIDE) [Concomitant]
  5. ZELNORM [Concomitant]
  6. VITAMIN B12 (CYANCOBALAMIN) [Concomitant]
  7. ZOLOFT [Concomitant]
  8. CARAFATE [Concomitant]
  9. ROXICOXINE [Concomitant]
  10. DURAGESIC-100 [Concomitant]
  11. VALIUM [Concomitant]
  12. METHADONE HCL [Concomitant]

REACTIONS (44)
  - AGGRESSION [None]
  - AGITATION [None]
  - ANOREXIA [None]
  - ANXIETY [None]
  - APATHY [None]
  - ARTHRALGIA [None]
  - BACK PAIN [None]
  - BRONCHITIS [None]
  - COMA [None]
  - CONFUSIONAL STATE [None]
  - CONSTIPATION [None]
  - DELIRIUM TREMENS [None]
  - DELUSIONAL DISORDER, UNSPECIFIED TYPE [None]
  - DEPRESSION [None]
  - DRUG DEPENDENCE [None]
  - DRUG TOXICITY [None]
  - DRUG WITHDRAWAL SYNDROME [None]
  - FEELING ABNORMAL [None]
  - GASTROOESOPHAGEAL REFLUX DISEASE [None]
  - HALLUCINATION [None]
  - HEADACHE [None]
  - HYPERHIDROSIS [None]
  - HYPERSOMNIA [None]
  - INADEQUATE ANALGESIA [None]
  - INCOHERENT [None]
  - INSOMNIA [None]
  - IRRITABLE BOWEL SYNDROME [None]
  - LETHARGY [None]
  - MEMORY IMPAIRMENT [None]
  - MOOD SWINGS [None]
  - MUSCLE SPASMS [None]
  - NERVOUSNESS [None]
  - OBSESSIVE-COMPULSIVE DISORDER [None]
  - PAIN [None]
  - PAINFUL DEFAECATION [None]
  - PARANOIA [None]
  - PEPTIC ULCER [None]
  - PHOTOPHOBIA [None]
  - PRURITUS [None]
  - RHONCHI [None]
  - SENSORY DISTURBANCE [None]
  - SUICIDAL IDEATION [None]
  - TREMOR [None]
  - VAGINAL HAEMORRHAGE [None]
